FAERS Safety Report 5972038-4 (Version None)
Quarter: 2008Q4

REPORT INFORMATION
  Report Type: 
  Country: None (occurrence: None)
  Receive Date: 20081201
  Receipt Date: 20080606
  Transmission Date: 20090506
  Serious: No
  Sender: FDA-Public Use
  Company Number: US-TEVA-153888USA

PATIENT
  Sex: Male

DRUGS (1)
  1. SALBUTAMOL SULFATE INHALATION, 0.09 MG [Suspect]
     Dosage: 2 PUFFS FOUR TIMES DAILY AND AS NEEDED
     Route: 048
     Dates: start: 20070301

REACTIONS (4)
  - BENIGN NEOPLASM [None]
  - HYPERSENSITIVITY [None]
  - LICHEN PLANUS [None]
  - ORAL DISCOMFORT [None]
